FAERS Safety Report 5954717-8 (Version None)
Quarter: 2008Q4

REPORT INFORMATION
  Report Type: 
  Country: None (occurrence: None)
  Receive Date: 20081117
  Receipt Date: 20081108
  Transmission Date: 20090506
  Serious: Yes (Other)
  Sender: FDA-Public Use
  Company Number: PHHY2008BR27833

PATIENT
  Age: 88 Year
  Sex: Female

DRUGS (2)
  1. TRILEPTAL [Suspect]
     Dosage: 300 MG, UNK
  2. CITALOPRAM HYDROBROMIDE [Concomitant]
     Dosage: 30 MG, UNK

REACTIONS (5)
  - ASTHENIA [None]
  - DEPRESSION [None]
  - EPILEPSY [None]
  - FALL [None]
  - SOMNOLENCE [None]
